FAERS Safety Report 16851739 (Version 1)
Quarter: 2019Q3

REPORT INFORMATION
  Report Type: Report from Study
  Country: US (occurrence: US)
  Receive Date: 20190925
  Receipt Date: 20190925
  Transmission Date: 20191005
  Serious: Yes (Hospitalization)
  Sender: FDA-Public Use
  Company Number: US-ACTELION-A-NJ2019-193011

PATIENT
  Age: 76 Year
  Sex: Male

DRUGS (13)
  1. LASIX [Concomitant]
     Active Substance: FUROSEMIDE
     Dosage: 40 MG, QD
  2. HUMULIN NOS [Concomitant]
     Active Substance: INSULIN HUMAN
  3. MELATONIN [Concomitant]
     Active Substance: MELATONIN
  4. COREG [Concomitant]
     Active Substance: CARVEDILOL
     Dosage: UNK
     Dates: start: 20190703
  5. PROTONIL [Concomitant]
  6. PLAVIX [Concomitant]
     Active Substance: CLOPIDOGREL BISULFATE
  7. ALLOPURINOL. [Concomitant]
     Active Substance: ALLOPURINOL
  8. FLONASE [Concomitant]
     Active Substance: FLUTICASONE PROPIONATE
  9. OPSUMIT [Suspect]
     Active Substance: MACITENTAN
     Indication: PULMONARY ARTERIAL HYPERTENSION
     Dosage: 10 MG, QD
     Route: 048
     Dates: start: 20190619, end: 20190703
  10. ATORVASTATIN [Concomitant]
     Active Substance: ATORVASTATIN
     Dosage: UNK
     Dates: start: 20190703
  11. PROSCAR [Concomitant]
     Active Substance: FINASTERIDE
  12. LANTUS [Concomitant]
     Active Substance: INSULIN GLARGINE
  13. ACETYLSALICYLIC ACID [Concomitant]
     Active Substance: ASPIRIN
     Dosage: 325 UNK, QD

REACTIONS (6)
  - Swelling [Recovered/Resolved]
  - Cardiac failure congestive [Recovered/Resolved with Sequelae]
  - Pleural effusion [Recovered/Resolved with Sequelae]
  - Fluid retention [Recovered/Resolved with Sequelae]
  - Dyspnoea [Recovered/Resolved with Sequelae]
  - Weight increased [Recovered/Resolved]

NARRATIVE: CASE EVENT DATE: 20190703
